FAERS Safety Report 4910255-2 (Version None)
Quarter: 2006Q1

REPORT INFORMATION
  Report Type: 
  Country: None (occurrence: None)
  Receive Date: 20060209
  Receipt Date: 20060126
  Transmission Date: 20060701
  Serious: Yes (Death)
  Sender: FDA-Public Use
  Company Number: US200601004757

PATIENT
  Age: 5 Month
  Sex: Female

DRUGS (1)
  1. HUMATROPE [Suspect]
     Indication: TRAUMATIC BRAIN INJURY
     Dosage: 0.22 MG, DAILY (1/D)
     Dates: start: 20050912

REACTIONS (2)
  - NERVOUS SYSTEM DISORDER [None]
  - NEUROLOGICAL SYMPTOM [None]
